FAERS Safety Report 25146603 (Version 1)
Quarter: 2025Q2

REPORT INFORMATION
  Report Type: Spontaneous
  Country: JP (occurrence: JP)
  Receive Date: 20250401
  Receipt Date: 20250401
  Transmission Date: 20250717
  Serious: Yes (Life-Threatening, Hospitalization, Other)
  Sender: ALEXION PHARMACEUTICALS
  Company Number: JP-ASTRAZENECA-250030541_013120_P_1

PATIENT
  Age: 76 Year
  Weight: 74 kg

DRUGS (11)
  1. DURVALUMAB [Suspect]
     Active Substance: DURVALUMAB
     Indication: Bile duct cancer
  2. ROSUVASTATIN [Concomitant]
     Active Substance: ROSUVASTATIN
  3. CISPLATIN [Concomitant]
     Active Substance: CISPLATIN
     Indication: Bile duct cancer
     Route: 065
  4. GEMCITABINE HYDROCHLORIDE [Concomitant]
     Active Substance: GEMCITABINE HYDROCHLORIDE
     Indication: Bile duct cancer
     Route: 065
  5. GEMCITABINE HYDROCHLORIDE [Concomitant]
     Active Substance: GEMCITABINE HYDROCHLORIDE
     Route: 065
  6. CARVEDILOL [Concomitant]
     Active Substance: CARVEDILOL
  7. VONOPRAZAN FUMARATE [Concomitant]
     Active Substance: VONOPRAZAN FUMARATE
  8. TELMISARTAN [Concomitant]
     Active Substance: TELMISARTAN
  9. AMLODIPINE BESYLATE [Concomitant]
     Active Substance: AMLODIPINE BESYLATE
  10. EDOXABAN TOSYLATE [Concomitant]
     Active Substance: EDOXABAN TOSYLATE
  11. CARBOCYSTEINE [Concomitant]
     Active Substance: CARBOCYSTEINE

REACTIONS (6)
  - Cytokine release syndrome [Recovering/Resolving]
  - Acute kidney injury [Unknown]
  - Metabolic acidosis [Unknown]
  - Septic shock [Unknown]
  - Respiratory failure [Unknown]
  - Malignant neoplasm progression [Unknown]
